FAERS Safety Report 8070453-9 (Version None)
Quarter: 2012Q1

REPORT INFORMATION
  Report Type: 
  Country: None (occurrence: None)
  Receive Date: 20120125
  Receipt Date: 20120118
  Transmission Date: 20120608
  Serious: Yes (Other)
  Sender: FDA-Public Use
  Company Number: TW-JNJFOC-20120107993

PATIENT
  Age: 54 Year
  Sex: Male

DRUGS (5)
  1. REGAINE 2% TOPICAL SOLUTION [Suspect]
     Route: 061
  2. ANTI-ANGINA MEDICATION [Concomitant]
     Indication: ANGINA PECTORIS
     Route: 065
  3. OTHER MEDICINES [Concomitant]
     Indication: GLAUCOMA
     Route: 065
  4. HYPERTENSION MEDICATION [Concomitant]
     Indication: HYPERTENSION
     Route: 065
  5. REGAINE 2% TOPICAL SOLUTION [Suspect]
     Indication: PRODUCT USED FOR UNKNOWN INDICATION
     Route: 061
     Dates: start: 20110908, end: 20111208

REACTIONS (1)
  - ANGINA PECTORIS [None]
